FAERS Safety Report 8619677-X (Version None)
Quarter: 2012Q3

REPORT INFORMATION
  Report Type: 
  Country: None (occurrence: None)
  Receive Date: 20120824
  Receipt Date: 20120821
  Transmission Date: 20120928
  Serious: Yes (Other)
  Sender: FDA-Public Use
  Company Number: BR-PFIZER INC-2012204526

PATIENT
  Age: 61 Year
  Sex: Female

DRUGS (5)
  1. MICARDIS HCT [Concomitant]
     Indication: HYPERTENSION
     Dosage: ONE TABLET ONCE DAILY
  2. ALPRAZOLAM [Suspect]
     Indication: DEPRESSION
     Dosage: 1 MG, 2X/DAY
     Route: 048
     Dates: start: 20060821
  3. ALPRAZOLAM [Suspect]
     Dosage: 1 MG, 2X/DAY
     Route: 048
     Dates: start: 20070821
  4. AMPLICTIL [Concomitant]
     Indication: PAIN
     Dosage: ONE TABLET ONCE DAILY
     Dates: start: 20080101
  5. VENLIFT [Concomitant]
     Indication: DEPRESSION
     Dosage: ONE TABLET WICE DAILY
     Dates: start: 20040101

REACTIONS (3)
  - INTERVERTEBRAL DISC INJURY [None]
  - SPINAL PAIN [None]
  - FALL [None]
